FAERS Safety Report 9318982 (Version 1)
Quarter: 2013Q2

REPORT INFORMATION
  Report Type: Spontaneous
  Country: US (occurrence: None)
  Receive Date: 20130524
  Receipt Date: 20130524
  Transmission Date: 20140414
  Serious: Yes (Other)
  Sender: FDA-Public Use
  Company Number: A1023824A

PATIENT
  Age: 75 Year
  Sex: Female

DRUGS (1)
  1. METHYLCELLULOSE [Suspect]
     Route: 048

REACTIONS (7)
  - Vomiting [None]
  - Malaise [None]
  - Frequent bowel movements [None]
  - Abdominal discomfort [None]
  - Constipation [None]
  - Peptic ulcer [None]
  - Incorrect dose administered [None]
